FAERS Safety Report 15009412 (Version 2)
Quarter: 2018Q3

REPORT INFORMATION
  Report Type: Spontaneous
  Country: CH (occurrence: CH)
  Receive Date: 20180614
  Receipt Date: 20180912
  Transmission Date: 20181010
  Serious: Yes (Hospitalization)
  Sender: FDA-Public Use
  Company Number: CH-TEVA-2018-CH-904921

PATIENT
  Age: 27 Year
  Sex: Female

DRUGS (1)
  1. CETIRIZIN?MEPHA 10MG LACTAB [Suspect]
     Active Substance: CETIRIZINE HYDROCHLORIDE
     Route: 048
     Dates: start: 201805

REACTIONS (3)
  - Rash generalised [Unknown]
  - Malaise [Unknown]
  - Hypersensitivity [Not Recovered/Not Resolved]

NARRATIVE: CASE EVENT DATE: 201805
